FAERS Safety Report 7137764-2 (Version None)
Quarter: 2010Q4

REPORT INFORMATION
  Report Type: 
  Country: None (occurrence: None)
  Receive Date: 20101206
  Receipt Date: 20101124
  Transmission Date: 20110411
  Serious: Yes (Other)
  Sender: FDA-Public Use
  Company Number: JP-SANOFI-AVENTIS-2010SA070657

PATIENT
  Age: 77 Year
  Sex: Female

DRUGS (3)
  1. GRAMALIL [Suspect]
     Route: 048
  2. MYSLEE [Suspect]
     Route: 048
  3. SERENACE [Concomitant]
     Route: 048

REACTIONS (1)
  - DELIRIUM [None]
